FAERS Safety Report 20314344 (Version 1)
Quarter: 2022Q1

REPORT INFORMATION
  Report Type: Spontaneous
  Country: US (occurrence: US)
  Receive Date: 20220109
  Receipt Date: 20220109
  Transmission Date: 20220423
  Serious: No
  Sender: FDA-Public Use
  Company Number: US-SANOFI-00920215

PATIENT
  Age: 77 Year
  Sex: Female

DRUGS (12)
  1. DUPIXENT [Suspect]
     Active Substance: DUPILUMAB
     Indication: Keratoacanthoma
     Dosage: UNK UNK, 1X
     Dates: start: 20211204, end: 20211204
  2. DUPIXENT [Suspect]
     Active Substance: DUPILUMAB
     Dosage: 300 MG, QOW
     Dates: start: 202112
  3. CORTISONE [Concomitant]
     Active Substance: CORTISONE
     Indication: Rash
  4. PREDNISONE [Concomitant]
     Active Substance: PREDNISONE
     Indication: Pruritus
     Dosage: 40 MG, QD
  5. PREDNISONE [Concomitant]
     Active Substance: PREDNISONE
     Dosage: 20 MG, QD
  6. LIBTAYO [CEMIPLIMAB] [Concomitant]
     Indication: Squamous cell carcinoma
     Dosage: UNK
     Dates: start: 202105, end: 202106
  7. RETINOL [Concomitant]
     Active Substance: RETINOL
     Indication: Swelling
     Dosage: UNK
     Route: 048
  8. RETINOL [Concomitant]
     Active Substance: RETINOL
     Indication: Rash
  9. RETINOL [Concomitant]
     Active Substance: RETINOL
     Indication: Rash erythematous
  10. RETINOL [Concomitant]
     Active Substance: RETINOL
     Indication: Rash pruritic
  11. METHOTREXATE [Concomitant]
     Active Substance: METHOTREXATE
  12. URACIL [Concomitant]
     Active Substance: URACIL

REACTIONS (2)
  - Product use in unapproved indication [Unknown]
  - Drug ineffective [Unknown]

NARRATIVE: CASE EVENT DATE: 20211204
